FAERS Safety Report 21036340 (Version 1)
Quarter: 2022Q3

REPORT INFORMATION
  Report Type: Spontaneous
  Country: CA (occurrence: CA)
  Receive Date: 20220702
  Receipt Date: 20220702
  Transmission Date: 20221026
  Serious: Yes (Hospitalization)
  Sender: FDA-Public Use
  Company Number: CA-BAYER-2022A090684

PATIENT
  Age: 76 Year
  Sex: Male
  Weight: 95 kg

DRUGS (8)
  1. XARELTO [Suspect]
     Active Substance: RIVAROXABAN
     Indication: Vascular graft
     Dosage: 20 MG, QD
     Route: 048
  2. XARELTO [Suspect]
     Active Substance: RIVAROXABAN
     Indication: Transient ischaemic attack
  3. XARELTO [Suspect]
     Active Substance: RIVAROXABAN
     Indication: Coronary artery disease
  4. XARELTO [Suspect]
     Active Substance: RIVAROXABAN
     Indication: Cerebrovascular accident
  5. ROBAXISAL [Suspect]
     Active Substance: ASPIRIN\METHOCARBAMOL
     Indication: Arthritis
     Dosage: 500 MG
     Route: 048
  6. IBUPROFEN\METHOCARBAMOL [Suspect]
     Active Substance: IBUPROFEN\METHOCARBAMOL
     Indication: Musculoskeletal pain
     Dosage: 500 MG
     Route: 048
  7. EZETIMIBE [Concomitant]
     Active Substance: EZETIMIBE
  8. CRESTOR [Concomitant]
     Active Substance: ROSUVASTATIN CALCIUM

REACTIONS (5)
  - Gastrointestinal haemorrhage [Unknown]
  - Haemoglobin decreased [Unknown]
  - Duodenal ulcer haemorrhage [Unknown]
  - Hiatus hernia [Unknown]
  - Diverticulum [Unknown]
